FAERS Safety Report 13830835 (Version 4)
Quarter: 2017Q4

REPORT INFORMATION
  Report Type: Spontaneous
  Country: PT (occurrence: PT)
  Receive Date: 20170803
  Receipt Date: 20171110
  Transmission Date: 20180320
  Serious: Yes (Disabling)
  Sender: FDA-Public Use
  Company Number: PT-TEVA-792010ISR

PATIENT
  Sex: Male
  Weight: 53 kg

DRUGS (5)
  1. LORSEDAL [Interacting]
     Active Substance: LORAZEPAM
     Indication: NERVOUSNESS
     Route: 048
     Dates: start: 1997
  2. SOCIAN [Interacting]
     Active Substance: AMISULPRIDE
     Indication: ASTHENIA
     Route: 048
     Dates: start: 1997
  3. LOSARTAN + HIDROCLOROTIAZIDA RATIOPHARM [Suspect]
     Active Substance: HYDROCHLOROTHIAZIDE\LOSARTAN POTASSIUM
     Indication: HYPERTENSION
     Route: 048
     Dates: start: 2014
  4. TANSULOSINA MEPHA 0.4 MG CAPSULAS DURAS DE LIBERTACAO PROLONGADA [Interacting]
     Active Substance: TAMSULOSIN HYDROCHLORIDE
     Indication: BENIGN PROSTATIC HYPERPLASIA
     Route: 048
  5. BEN-U-RON [Concomitant]
     Indication: HEADACHE
     Route: 048

REACTIONS (14)
  - Vision blurred [Not Recovered/Not Resolved]
  - Flatulence [Not Recovered/Not Resolved]
  - Arthralgia [Not Recovered/Not Resolved]
  - Photophobia [Not Recovered/Not Resolved]
  - Palpitations [Not Recovered/Not Resolved]
  - Drug interaction [Unknown]
  - Dry mouth [Not Recovered/Not Resolved]
  - Heart rate decreased [Not Recovered/Not Resolved]
  - Abdominal pain upper [Not Recovered/Not Resolved]
  - Tinnitus [Not Recovered/Not Resolved]
  - Condition aggravated [Not Recovered/Not Resolved]
  - Dizziness [Not Recovered/Not Resolved]
  - Balance disorder [Not Recovered/Not Resolved]
  - Hypoaesthesia [Not Recovered/Not Resolved]

NARRATIVE: CASE EVENT DATE: 2014
